FAERS Safety Report 15535921 (Version 5)
Quarter: 2020Q1

REPORT INFORMATION
  Report Type: Spontaneous
  Country: US (occurrence: US)
  Receive Date: 20181022
  Receipt Date: 20200128
  Transmission Date: 20200409
  Serious: Yes (Other)
  Sender: FDA-Public Use
  Company Number: US-PFIZER INC-2018420683

PATIENT
  Age: 66 Year
  Sex: Female
  Weight: 72.56 kg

DRUGS (2)
  1. LYRICA [Suspect]
     Active Substance: PREGABALIN
     Indication: LICHEN PLANUS
     Dosage: 200 MG, THREE TIMES A DAY
     Route: 048
  2. LYRICA [Suspect]
     Active Substance: PREGABALIN
     Indication: TRIGEMINAL NEURALGIA
     Dosage: 150 MG, THREE TIMES A DAY
     Route: 048
     Dates: end: 20181015

REACTIONS (16)
  - Headache [Unknown]
  - Malaise [Not Recovered/Not Resolved]
  - Weight decreased [Unknown]
  - Burning sensation [Unknown]
  - Upper limb fracture [Recovering/Resolving]
  - Fall [Not Recovered/Not Resolved]
  - Speech disorder [Unknown]
  - Wrist fracture [Recovering/Resolving]
  - Tooth fracture [Unknown]
  - Nerve injury [Unknown]
  - Irritability [Unknown]
  - Insomnia [Unknown]
  - Pain [Not Recovered/Not Resolved]
  - Decreased appetite [Not Recovered/Not Resolved]
  - Hyperhidrosis [Unknown]
  - Back pain [Unknown]

NARRATIVE: CASE EVENT DATE: 201809
